FAERS Safety Report 8758647 (Version 2)
Quarter: 2012Q4

REPORT INFORMATION
  Report Type: 
  Country: US (occurrence: US)
  Receive Date: 20120829
  Receipt Date: 20121029
  Transmission Date: 20130627
  Serious: Yes (Other)
  Sender: FDA-Public Use
  Company Number: US-JNJFOC-20120810746

PATIENT
  Age: 65 None
  Sex: Female
  Weight: 68.04 kg

DRUGS (8)
  1. XARELTO [Suspect]
     Indication: CEREBROVASCULAR ACCIDENT PROPHYLAXIS
     Route: 048
     Dates: start: 20120820
  2. XARELTO [Suspect]
     Indication: CEREBROVASCULAR ACCIDENT PROPHYLAXIS
     Route: 048
     Dates: start: 20120813
  3. XARELTO [Suspect]
     Indication: ATRIAL FIBRILLATION
     Route: 048
     Dates: start: 20120820
  4. XARELTO [Suspect]
     Indication: ATRIAL FIBRILLATION
     Route: 048
     Dates: start: 20120813
  5. ZEBETA [Concomitant]
     Indication: BLOOD PRESSURE
     Route: 048
  6. LEVOXYL [Concomitant]
     Indication: THYROID DISORDER
     Dosage: .112
     Route: 048
  7. LOSARTAN [Concomitant]
     Indication: BLOOD PRESSURE
     Route: 048
  8. WARFARIN [Concomitant]
     Indication: CARDIAC DISORDER
     Route: 048

REACTIONS (6)
  - Intervertebral disc protrusion [Unknown]
  - Inappropriate schedule of drug administration [Not Recovered/Not Resolved]
  - Feeling hot [Not Recovered/Not Resolved]
  - Paraesthesia [Not Recovered/Not Resolved]
  - Fatigue [Unknown]
  - Flushing [Recovered/Resolved]
